FAERS Safety Report 25394975 (Version 1)
Quarter: 2025Q2

REPORT INFORMATION
  Report Type: Spontaneous
  Country: ES (occurrence: ES)
  Receive Date: 20250604
  Receipt Date: 20250604
  Transmission Date: 20250717
  Serious: Yes (Hospitalization)
  Sender: RANBAXY
  Company Number: ES-AEMPS-1638602

PATIENT
  Age: 14 Year
  Sex: Male
  Weight: 70 kg

DRUGS (2)
  1. ACETAMINOPHEN [Suspect]
     Active Substance: ACETAMINOPHEN
     Indication: Headache
     Route: 048
     Dates: start: 20250114, end: 20250114
  2. CREATINE [Suspect]
     Active Substance: CREATINE
     Indication: Muscle building therapy
     Dosage: 7 GRAM, DAILY
     Route: 048
     Dates: start: 20250106, end: 20250116

REACTIONS (3)
  - Hepatocellular injury [Recovering/Resolving]
  - Coagulopathy [Recovered/Resolved]
  - Hyperbilirubinaemia [Recovered/Resolved]

NARRATIVE: CASE EVENT DATE: 20250116
